FAERS Safety Report 12302690 (Version 1)
Quarter: 2016Q2

REPORT INFORMATION
  Report Type: Spontaneous
  Country: US (occurrence: US)
  Receive Date: 20160425
  Receipt Date: 20160425
  Transmission Date: 20160815
  Serious: No
  Sender: FDA-Public Use
  Company Number: US-SA-2016SA048130

PATIENT
  Age: 35 Year
  Sex: Female

DRUGS (1)
  1. LOVENOX [Suspect]
     Active Substance: ENOXAPARIN SODIUM
     Indication: ANTIPHOSPHOLIPID ANTIBODIES
     Route: 065

REACTIONS (5)
  - Exposure during pregnancy [Unknown]
  - Mouth haemorrhage [Unknown]
  - Antiphospholipid antibodies [Unknown]
  - Epistaxis [Unknown]
  - Injection site bruising [Unknown]
